FAERS Safety Report 11233419 (Version 5)
Quarter: 2015Q4

REPORT INFORMATION
  Report Type: Report from Study
  Country: US (occurrence: US)
  Receive Date: 20150702
  Receipt Date: 20151103
  Transmission Date: 20160304
  Serious: Yes (Other)
  Sender: FDA-Public Use
  Company Number: US-AMGEN-USASP2015065086

PATIENT
  Age: 83 Year
  Sex: Male

DRUGS (5)
  1. ENBREL [Suspect]
     Active Substance: ETANERCEPT
     Dosage: UNK
     Route: 065
     Dates: start: 2012, end: 2015
  2. GIN [Concomitant]
     Active Substance: ALCOHOL
     Dosage: UNK
  3. SOMNAPURE [Concomitant]
     Indication: INSOMNIA
     Dosage: UNK
  4. ENBREL [Suspect]
     Active Substance: ETANERCEPT
     Indication: RHEUMATOID ARTHRITIS
     Dosage: 50 MG, QWK
     Route: 065
     Dates: end: 2007
  5. ENBREL [Suspect]
     Active Substance: ETANERCEPT
     Dosage: UNK
     Route: 065
     Dates: start: 2015, end: 201510

REACTIONS (7)
  - Rheumatoid arthritis [Unknown]
  - Rash macular [Unknown]
  - Insomnia [Unknown]
  - Musculoskeletal discomfort [Not Recovered/Not Resolved]
  - Condition aggravated [Unknown]
  - Urticaria [Unknown]
  - Musculoskeletal chest pain [Not Recovered/Not Resolved]

NARRATIVE: CASE EVENT DATE: 2015
